FAERS Safety Report 5152908-X (Version None)
Quarter: 2006Q4

REPORT INFORMATION
  Report Type: 
  Country: None (occurrence: None)
  Receive Date: 20061113
  Receipt Date: 20061113
  Transmission Date: 20070319
  Serious: Yes (Hospitalization)
  Sender: FDA-Public Use
  Company Number: None

PATIENT
  Sex: Male
  Weight: 87.9978 kg

DRUGS (2)
  1. CISPLATIN [Suspect]
     Indication: NEOPLASM MALIGNANT
     Dosage: 101 MG IV/EVERY 3 WEEKS
     Route: 042
     Dates: start: 20060929
  2. DOCETAXEL [Suspect]
     Indication: NEOPLASM MALIGNANT
     Dosage: 101 MG IV/EVERY 3 WEEKS
     Route: 042
     Dates: start: 20060929

REACTIONS (2)
  - CLOSTRIDIAL INFECTION [None]
  - DISEASE RECURRENCE [None]
